FAERS Safety Report 8588151-1 (Version None)
Quarter: 2012Q3

REPORT INFORMATION
  Report Type: 
  Country: None (occurrence: None)
  Receive Date: 20120731
  Receipt Date: 20120716
  Transmission Date: 20120928
  Serious: Yes (Death, Other)
  Sender: FDA-Public Use
  Company Number: TPA2012A04799

PATIENT
  Sex: Female

DRUGS (1)
  1. ACTOS [Suspect]
     Dates: start: 20071207, end: 20100601

REACTIONS (1)
  - BLADDER CANCER [None]
